FAERS Safety Report 14549699 (Version 1)
Quarter: 2018Q1

REPORT INFORMATION
  Report Type: Spontaneous
  Country: US (occurrence: US)
  Receive Date: 20180219
  Receipt Date: 20180219
  Transmission Date: 20180509
  Serious: No
  Sender: FDA-Public Use
  Company Number: US-SUNOVION-2018SUN000559

PATIENT
  Age: 12 Year
  Sex: Male
  Weight: 117.6 kg

DRUGS (3)
  1. LATUDA [Suspect]
     Active Substance: LURASIDONE HYDROCHLORIDE
     Dosage: 40 MG, UNK
     Route: 048
  2. LATUDA [Suspect]
     Active Substance: LURASIDONE HYDROCHLORIDE
     Indication: BIPOLAR DISORDER
     Dosage: 20 MG, UNK
     Route: 048
     Dates: start: 201802
  3. BENZTROPINE. [Concomitant]
     Active Substance: BENZTROPINE

REACTIONS (5)
  - Swelling [Recovering/Resolving]
  - Urticaria [Recovered/Resolved]
  - Abnormal behaviour [Unknown]
  - Off label use [Not Recovered/Not Resolved]
  - Erythema [Recovering/Resolving]
